FAERS Safety Report 12353836 (Version 2)
Quarter: 2016Q3

REPORT INFORMATION
  Report Type: Spontaneous
  Country: SI (occurrence: SI)
  Receive Date: 20160511
  Receipt Date: 20160701
  Transmission Date: 20161109
  Serious: Yes (Other)
  Sender: FDA-Public Use
  Company Number: SI-BEH-2016062230

PATIENT
  Age: 83 Year
  Sex: Female

DRUGS (13)
  1. CETIXIN [Concomitant]
     Route: 065
  2. HELEX [Concomitant]
     Active Substance: ALPRAZOLAM
     Route: 065
  3. DEXAMETHASON [Concomitant]
     Active Substance: DEXAMETHASONE
     Route: 065
  4. ALKERAN [Concomitant]
     Active Substance: MELPHALAN
     Route: 065
  5. CONCOR [Concomitant]
     Active Substance: BISOPROLOL FUMARATE
     Dosage: 2.5MG IN THE MORNING
     Route: 065
  6. LERCAPRESS [Concomitant]
     Active Substance: ENALAPRIL MALEATE\LERCANIDIPINE HYDROCHLORIDE
     Dosage: 1/2 TBL, EXACTLY TILL NEXT CONTROL 1 TBL. DAILY
     Route: 065
  7. AZOPT DROPS [Concomitant]
     Dosage: DROPS
     Route: 065
  8. REVLIMID [Concomitant]
     Active Substance: LENALIDOMIDE
     Route: 065
  9. TAMETIL [Concomitant]
     Dosage: 10 MG (3X)
     Route: 065
  10. BEDULIN [Concomitant]
     Dosage: 1 SPRAY PER DAY
     Route: 055
  11. PRIVIGEN [Suspect]
     Active Substance: HUMAN IMMUNOGLOBULIN G
     Indication: IMMUNOSUPPRESSION
     Dosage: DOSE: 10 G OF PLANNED 20 G
     Route: 042
     Dates: start: 20141001, end: 20141001
  12. MICARDIS PLUS 80/12.5 [Concomitant]
     Dosage: 80/12.5 IN THE MORNING
     Route: 065
  13. CORDARONE [Concomitant]
     Active Substance: AMIODARONE HYDROCHLORIDE
     Dosage: 1 TBL IN THE MORNING
     Route: 065

REACTIONS (4)
  - Body temperature increased [Recovered/Resolved]
  - Cytokine release syndrome [Recovered/Resolved]
  - Pyrexia [Recovered/Resolved]
  - Chills [Recovered/Resolved]

NARRATIVE: CASE EVENT DATE: 20141001
